FAERS Safety Report 17870293 (Version 1)
Quarter: 2020Q2

REPORT INFORMATION
  Report Type: Spontaneous
  Country: US (occurrence: US)
  Receive Date: 20200605
  Receipt Date: 20200605
  Transmission Date: 20200714
  Serious: Yes (Other)
  Sender: FDA-Public Use
  Company Number: None

PATIENT
  Age: 56 Year
  Sex: Female
  Weight: 56.25 kg

DRUGS (9)
  1. ISOMER E [Concomitant]
  2. FISH OIL [Concomitant]
     Active Substance: FISH OIL
  3. CRANBERRY GUMMIES [Concomitant]
  4. CALCIUM PILLS [Concomitant]
  5. HIBICLENS [Suspect]
     Active Substance: CHLORHEXIDINE GLUCONATE
     Indication: ANTIBIOTIC PROPHYLAXIS
     Dosage: ?          OTHER FREQUENCY:ONCE;?
     Route: 067
     Dates: start: 20200602, end: 20200602
  6. OMEGA 3 [Concomitant]
     Active Substance: OMEGA-3 FATTY ACIDS
  7. GARLIC PILL [Concomitant]
  8. CENTRUM [Concomitant]
     Active Substance: VITAMINS
  9. VITAMIN B COMPLEX [Concomitant]
     Active Substance: CYANOCOBALAMIN\DEXPANTHENOL\NIACINAMIDE\PYRIDOXINE HYDROCHLORIDE\RIBOFLAVIN 5^-PHOSPHATE SODIUM\THIAMINE HYDROCHLORIDE\VITAMIN B COMPLEX

REACTIONS (9)
  - Procedural complication [None]
  - Drug hypersensitivity [None]
  - Vulvovaginal pain [None]
  - Gait disturbance [None]
  - Contusion [None]
  - Vulvovaginal swelling [None]
  - Skin discolouration [None]
  - Dysuria [None]
  - Product use issue [None]

NARRATIVE: CASE EVENT DATE: 20200602
